FAERS Safety Report 12632760 (Version 2)
Quarter: 2016Q3

REPORT INFORMATION
  Report Type: Spontaneous
  Country: US (occurrence: US)
  Receive Date: 20160808
  Receipt Date: 20160808
  Transmission Date: 20161109
  Serious: No
  Sender: FDA-Public Use
  Company Number: US-BEH-2015056833

PATIENT
  Sex: Female
  Weight: 72 kg

DRUGS (17)
  1. LMX [Concomitant]
     Active Substance: LIDOCAINE
  2. CALCIUM+D [Concomitant]
     Active Substance: CALCIUM\VITAMIN D
  3. SINGULAIR [Concomitant]
     Active Substance: MONTELUKAST SODIUM
  4. DICLOFENAC SOD DR [Concomitant]
  5. ALLEGRA [Concomitant]
     Active Substance: FEXOFENADINE HYDROCHLORIDE
  6. MELATONIN [Concomitant]
     Active Substance: MELATONIN
  7. TRAMADOL. [Concomitant]
     Active Substance: TRAMADOL
  8. HIZENTRA [Suspect]
     Active Substance: HUMAN IMMUNOGLOBULIN G
     Indication: IMMUNODEFICIENCY COMMON VARIABLE
     Route: 058
  9. DIPHENHYDRAMINE. [Concomitant]
     Active Substance: DIPHENHYDRAMINE
  10. EPIPEN [Concomitant]
     Active Substance: EPINEPHRINE
  11. MULTIVITAMINS [Concomitant]
     Active Substance: VITAMINS
  12. SIMVASTATIN. [Concomitant]
     Active Substance: SIMVASTATIN
  13. PROAIR HFA [Concomitant]
     Active Substance: ALBUTEROL SULFATE
  14. VITAMIN C [Concomitant]
     Active Substance: ASCORBIC ACID
  15. BENAZEPRIL [Concomitant]
     Active Substance: BENAZEPRIL HYDROCHLORIDE
  16. TYLENOL EX-STR [Concomitant]
  17. ALBUTEROL. [Concomitant]
     Active Substance: ALBUTEROL

REACTIONS (5)
  - Rhinorrhoea [Unknown]
  - Discomfort [Unknown]
  - Cough [Unknown]
  - Sinusitis [Unknown]
  - Nasopharyngitis [Unknown]
